FAERS Safety Report 5803459-8 (Version None)
Quarter: 2008Q3

REPORT INFORMATION
  Report Type: 
  Country: None (occurrence: None)
  Receive Date: 20080708
  Receipt Date: 20080627
  Transmission Date: 20090109
  Serious: Yes (Death)
  Sender: FDA-Public Use
  Company Number: DE-ROCHE-537892

PATIENT
  Sex: Male
  Weight: 72.9 kg

DRUGS (3)
  1. CAPECITABINE [Suspect]
     Indication: METASTATIC GASTRIC CANCER
     Dosage: FREQUENCY: DAY 1 - 14 OF EVERY 3 WEEKS. FORM: PILLS
     Route: 048
     Dates: start: 20071002, end: 20071016
  2. DOCETAXEL [Suspect]
     Indication: METASTATIC GASTRIC CANCER
     Dosage: FREQUENCY REPORTED AS 1,8,22. INFUSION OVER 2 HOURS. FORM: INFUSION
     Route: 042
     Dates: start: 20071002, end: 20071211
  3. OXALIPLATIN [Suspect]
     Indication: METASTATIC GASTRIC CANCER
     Dosage: FREQUENCY REPORTED AS: 1,8,22. INFUSION OVER 2 HOURS. FORM: INFUSION
     Route: 042
     Dates: start: 20071002, end: 20071011

REACTIONS (1)
  - DEATH [None]
